FAERS Safety Report 21619230 (Version 1)
Quarter: 2022Q4

REPORT INFORMATION
  Report Type: Report from Study
  Country: US (occurrence: US)
  Receive Date: 20221120
  Receipt Date: 20221120
  Transmission Date: 20230113
  Serious: No
  Sender: FDA-Public Use
  Company Number: US-ABBVIE-4158568

PATIENT
  Age: 64 Year
  Sex: Female

DRUGS (4)
  1. HUMIRA [Suspect]
     Active Substance: ADALIMUMAB
     Indication: Crohn^s disease
     Route: 058
  2. Moderna [Concomitant]
     Indication: COVID-19 immunisation
     Dosage: 2ND DOSE, ONCE
     Route: 030
     Dates: start: 20210406, end: 20210406
  3. Moderna [Concomitant]
     Indication: COVID-19 immunisation
     Dosage: 3RD DOSE, ONCE?BOOSTER VACCINE
     Route: 030
     Dates: start: 20220904, end: 20220904
  4. Moderna [Concomitant]
     Indication: COVID-19 immunisation
     Dosage: 1ST DOSE, ONCE
     Route: 030
     Dates: start: 20210319, end: 20210319

REACTIONS (6)
  - Road traffic accident [Not Recovered/Not Resolved]
  - Vaginal disorder [Unknown]
  - Sitting disability [Unknown]
  - Musculoskeletal stiffness [Unknown]
  - Pelvic floor dysfunction [Unknown]
  - Pain [Unknown]

NARRATIVE: CASE EVENT DATE: 20220901
